FAERS Safety Report 6493758-1 (Version None)
Quarter: 2009Q4

REPORT INFORMATION
  Report Type: 
  Country: None (occurrence: None)
  Receive Date: 20091214
  Receipt Date: 20081124
  Transmission Date: 20100525
  Serious: No
  Sender: FDA-Public Use
  Company Number: US-BRISTOL-MYERS SQUIBB COMPANY-14356414

PATIENT
  Age: 47 Year
  Sex: Male

DRUGS (2)
  1. ABILIFY [Suspect]
     Indication: BIPOLAR DISORDER
     Route: 048
     Dates: start: 20080822
  2. DEPAKOTE ER [Concomitant]
     Dates: start: 20071101

REACTIONS (2)
  - COGNITIVE DISORDER [None]
  - FLAT AFFECT [None]
